FAERS Safety Report 6646372-9 (Version None)
Quarter: 2010Q1

REPORT INFORMATION
  Report Type: 
  Country: None (occurrence: None)
  Receive Date: 20100323
  Receipt Date: 20100310
  Transmission Date: 20100710
  Serious: Yes (Other)
  Sender: FDA-Public Use
  Company Number: PL-ROCHE-690775

PATIENT
  Sex: Female

DRUGS (4)
  1. CELLCEPT [Suspect]
     Indication: DRUG USE FOR UNKNOWN INDICATION
     Route: 065
  2. TACROLIMUS [Interacting]
     Indication: DRUG USE FOR UNKNOWN INDICATION
     Route: 065
  3. TACROLIMUS [Interacting]
     Dosage: DOSE REDUCED.
     Route: 065
  4. ANTIFUNGAL AGENT NOS [Interacting]
     Indication: DRUG USE FOR UNKNOWN INDICATION
     Route: 065

REACTIONS (2)
  - GRAFT VERSUS HOST DISEASE [None]
  - JAUNDICE [None]
